FAERS Safety Report 6193080-7 (Version None)
Quarter: 2009Q2

REPORT INFORMATION
  Report Type: 
  Country: None (occurrence: None)
  Receive Date: 20090518
  Receipt Date: 20090511
  Transmission Date: 20091009
  Serious: Yes (Death, Other)
  Sender: FDA-Public Use
  Company Number: US-TEVA-194793USA

PATIENT

DRUGS (3)
  1. CYCLOSPORINE [Suspect]
     Indication: HISTIOCYTOSIS
  2. DEXAMETHASONE 4MG TAB [Concomitant]
  3. ETOPOSIDE [Concomitant]

REACTIONS (9)
  - CEREBRAL HAEMORRHAGE [None]
  - CONVULSION [None]
  - DEAFNESS NEUROSENSORY [None]
  - HYPERTENSION [None]
  - LIVER DISORDER [None]
  - MENTAL STATUS CHANGES [None]
  - NEUROTOXICITY [None]
  - RENAL FAILURE ACUTE [None]
  - REVERSIBLE POSTERIOR LEUKOENCEPHALOPATHY SYNDROME [None]
